FAERS Safety Report 8190619-7 (Version None)
Quarter: 2012Q1

REPORT INFORMATION
  Report Type: 
  Country: None (occurrence: None)
  Receive Date: 20120307
  Receipt Date: 20120306
  Transmission Date: 20120608
  Serious: Yes (Other)
  Sender: FDA-Public Use
  Company Number: US-ROCHE-794325

PATIENT
  Sex: Female
  Weight: 77.18 kg

DRUGS (2)
  1. ACCUTANE [Suspect]
     Dates: start: 19900306, end: 19930531
  2. ACCUTANE [Suspect]
     Indication: ACNE
     Route: 048

REACTIONS (4)
  - INFLAMMATORY BOWEL DISEASE [None]
  - PRURITUS [None]
  - ACNE [None]
  - IRRITABLE BOWEL SYNDROME [None]
